FAERS Safety Report 10767216 (Version 1)
Quarter: 2015Q1

REPORT INFORMATION
  Report Type: Spontaneous
  Country: NL (occurrence: NL)
  Receive Date: 20150205
  Receipt Date: 20150205
  Transmission Date: 20150721
  Serious: Yes (Hospitalization, Other)
  Sender: FDA-Public Use
  Company Number: NL-TEVA-537335ISR

PATIENT
  Age: 50 Year
  Sex: Male

DRUGS (8)
  1. CRESTOR [Interacting]
     Active Substance: ROSUVASTATIN CALCIUM
     Indication: MYOCARDIAL INFARCTION
     Dosage: 20 MILLIGRAM DAILY; ONCE DAILY ONE PIECE
     Route: 048
     Dates: start: 20130820, end: 20150118
  2. CRESTOR [Interacting]
     Active Substance: ROSUVASTATIN CALCIUM
     Indication: HYPERTENSION
  3. CRESTOR [Interacting]
     Active Substance: ROSUVASTATIN CALCIUM
     Indication: INFARCTION
  4. HYDROCHLOORTHIAZIDE TABLET 12,5MG [Suspect]
     Active Substance: HYDROCHLOROTHIAZIDE
     Indication: CARDIAC DISORDER
     Dosage: 12.5 MILLIGRAM DAILY; ONCE DAILY ONE PIECE
     Route: 048
     Dates: start: 20130612, end: 20150118
  5. ATENOLOL TABLET  50MG [Concomitant]
     Dosage: 1 DD 1
     Route: 048
  6. LISINOPRIL TABLET 20MG [Concomitant]
     Active Substance: LISINOPRIL
     Dosage: 40 MILLIGRAM DAILY; 2 DD 1
     Route: 048
  7. ASCAL CARDIO SACHET 100MG [Concomitant]
     Dosage: 1 DD 1, ORAL POWDER
     Route: 048
  8. MOVICOLON POEDER VOOR DRANK IN SACHET [Concomitant]
     Dosage: 3DD 1 ZAKJE ZN
     Route: 048

REACTIONS (2)
  - Pancreatitis [Recovered/Resolved]
  - Drug interaction [Recovered/Resolved]

NARRATIVE: CASE EVENT DATE: 20150118
